FAERS Safety Report 22629459 (Version 2)
Quarter: 2023Q2

REPORT INFORMATION
  Report Type: Spontaneous
  Country: US (occurrence: US)
  Receive Date: 20230622
  Receipt Date: 20230630
  Transmission Date: 20230721
  Serious: No
  Sender: FDA-Public Use
  Company Number: US-PFIZER INC-PV202300107223

PATIENT
  Age: 79 Year
  Sex: Female

DRUGS (3)
  1. XELJANZ XR [Suspect]
     Active Substance: TOFACITINIB CITRATE
     Indication: Polyarthritis
     Dosage: XELJANZ 11 MG DAILY FOR THE PAST 5 YEARS
     Dates: start: 2018
  2. XELJANZ XR [Suspect]
     Active Substance: TOFACITINIB CITRATE
     Indication: Rheumatoid arthritis
     Dosage: NOW TAKING ONE PILL EVERY 3 DAYS
  3. XELJANZ XR [Suspect]
     Active Substance: TOFACITINIB CITRATE
     Dosage: RESUME XELJANZ 11 MG DAILY

REACTIONS (2)
  - Therapeutic product effect incomplete [Unknown]
  - Intentional product misuse [Unknown]
